FAERS Safety Report 8893960 (Version 1)
Quarter: 2012Q4

REPORT INFORMATION
  Report Type: 
  Country: CA (occurrence: CA)
  Receive Date: 20121107
  Receipt Date: 20121107
  Transmission Date: 20130627
  Serious: Yes (Life-Threatening, Hospitalization, Other)
  Sender: FDA-Public Use
  Company Number: PHHO2005CA05015

PATIENT
  Sex: Female
  Weight: 90.2 kg

DRUGS (4)
  1. SANDOSTATIN LAR [Suspect]
     Dosage: 30 mg, every 3 weeks
     Dates: start: 20041020
  2. PREDNISONE [Concomitant]
     Dosage: 5 mg, QD
     Route: 048
  3. PEGVISOMANT [Concomitant]
     Dosage: 20 mg, QHS
     Route: 058
  4. CANESTEN [Concomitant]
     Route: 061

REACTIONS (27)
  - Shock [Recovering/Resolving]
  - Uterine leiomyoma [Recovering/Resolving]
  - Splenomegaly [Recovering/Resolving]
  - Uterine enlargement [Recovering/Resolving]
  - Uterine cyst [Recovering/Resolving]
  - Blood pressure decreased [Recovering/Resolving]
  - Abdominal distension [Recovering/Resolving]
  - Tremor [Unknown]
  - Uterine disorder [Unknown]
  - Menorrhagia [Unknown]
  - Renal cyst [Unknown]
  - Nephrolithiasis [Unknown]
  - Blood glucose abnormal [Unknown]
  - Emotional disorder [Unknown]
  - Hunger [Unknown]
  - Localised oedema [Unknown]
  - Hypertension [Unknown]
  - Weight decreased [Unknown]
  - Anxiety [Unknown]
  - Hyperhidrosis [Unknown]
  - Blood pressure increased [Unknown]
  - Asthenia [Unknown]
  - Hypoglycaemia [Unknown]
  - Diarrhoea [Unknown]
  - Heart rate increased [Unknown]
  - Decreased appetite [Unknown]
  - Nausea [Unknown]
